FAERS Safety Report 5866783-9 (Version None)
Quarter: 2008Q3

REPORT INFORMATION
  Report Type: 
  Country: None (occurrence: None)
  Receive Date: 20080828
  Receipt Date: 20080828
  Transmission Date: 20090109
  Serious: Yes (Life-Threatening, Other)
  Sender: FDA-Public Use
  Company Number: None

PATIENT
  Age: 36 Year
  Sex: Female
  Weight: 65.7716 kg

DRUGS (1)
  1. BIAXIN XL [Suspect]
     Indication: BRONCHITIS
     Dosage: 2 DOSES  PO
     Route: 048
     Dates: start: 20080818, end: 20080819

REACTIONS (14)
  - ABDOMINAL PAIN UPPER [None]
  - CHROMATURIA [None]
  - DISORIENTATION [None]
  - DIZZINESS [None]
  - DYSPNOEA [None]
  - FEAR [None]
  - FEELING ABNORMAL [None]
  - HUNGER [None]
  - HYPOPHAGIA [None]
  - OROPHARYNGEAL PAIN [None]
  - PYREXIA [None]
  - RASH MACULAR [None]
  - SCLERAL DISCOLOURATION [None]
  - STOMATITIS [None]
